FAERS Safety Report 16873587 (Version 1)
Quarter: 2019Q4

REPORT INFORMATION
  Report Type: Spontaneous
  Country: TW (occurrence: TW)
  Receive Date: 20191001
  Receipt Date: 20191001
  Transmission Date: 20200122
  Serious: Yes (Hospitalization, Other)
  Sender: FDA-Public Use
  Company Number: TW-SA-2019SA266595

PATIENT
  Age: 58 Year
  Sex: Male

DRUGS (1)
  1. RANITIDINE. [Suspect]
     Active Substance: RANITIDINE
     Indication: GASTRIC ULCER
     Dosage: 150 MG, BID
     Route: 048

REACTIONS (5)
  - Conjunctivitis [Unknown]
  - Mouth ulceration [Recovered/Resolved]
  - Stevens-Johnson syndrome [Recovered/Resolved]
  - Rash maculo-papular [Recovered/Resolved]
  - Skin lesion [Unknown]
